FAERS Safety Report 18750696 (Version 1)
Quarter: 2021Q1

REPORT INFORMATION
  Report Type: Spontaneous
  Country: US (occurrence: US)
  Receive Date: 20210118
  Receipt Date: 20210118
  Transmission Date: 20210419
  Serious: No
  Sender: FDA-Public Use
  Company Number: US-CELGENEUS-USA-20210102641

PATIENT
  Sex: Male
  Weight: 78.09 kg

DRUGS (7)
  1. REVLIMID [Suspect]
     Active Substance: LENALIDOMIDE
     Dosage: 10MG ?05MG
     Route: 048
     Dates: start: 201812
  2. REVLIMID [Suspect]
     Active Substance: LENALIDOMIDE
     Dosage: 10MG ?7.5MG
     Route: 048
     Dates: start: 201911
  3. REVLIMID [Suspect]
     Active Substance: LENALIDOMIDE
     Dosage: 10MG ? 20MG
     Route: 048
     Dates: start: 202002
  4. REVLIMID [Suspect]
     Active Substance: LENALIDOMIDE
     Dosage: 10 MILLIGRAM
     Route: 048
     Dates: start: 202010, end: 202012
  5. REVLIMID [Suspect]
     Active Substance: LENALIDOMIDE
     Indication: PLASMA CELL MYELOMA
     Dosage: 15 MILLIGRAM
     Route: 048
     Dates: start: 201805
  6. REVLIMID [Suspect]
     Active Substance: LENALIDOMIDE
     Dosage: 2.5MG ?7.5MG
     Route: 048
     Dates: start: 201910
  7. REVLIMID [Suspect]
     Active Substance: LENALIDOMIDE
     Dosage: 10 MILLIGRAM
     Route: 048
     Dates: start: 201807

REACTIONS (1)
  - Plasma cell myeloma [Recovered/Resolved]
